FAERS Safety Report 17030761 (Version 1)
Quarter: 2019Q4

REPORT INFORMATION
  Report Type: Spontaneous
  Country: KR (occurrence: KR)
  Receive Date: 20191114
  Receipt Date: 20191114
  Transmission Date: 20200122
  Serious: Yes (Hospitalization, Other)
  Sender: FDA-Public Use
  Company Number: KR-PFIZER INC-2019488116

PATIENT
  Age: 44 Year
  Sex: Male

DRUGS (2)
  1. CHAMPIX [Suspect]
     Active Substance: VARENICLINE TARTRATE
     Indication: SMOKING CESSATION THERAPY
     Dosage: 1 DF, DAILY
     Route: 048
     Dates: start: 201910
  2. CHAMPIX [Suspect]
     Active Substance: VARENICLINE TARTRATE
     Dosage: 1 DF, 2X/DAY
     Route: 048
     Dates: start: 2019

REACTIONS (3)
  - Memory impairment [Unknown]
  - Skin laceration [Unknown]
  - Fall [Unknown]

NARRATIVE: CASE EVENT DATE: 20191104
